FAERS Safety Report 7866779-1 (Version None)
Quarter: 2011Q4

REPORT INFORMATION
  Report Type: 
  Country: None (occurrence: None)
  Receive Date: 20111028
  Receipt Date: 20110817
  Transmission Date: 20120403
  Serious: No
  Sender: FDA-Public Use
  Company Number: US-GLAXOSMITHKLINE-A0941377A

PATIENT
  Sex: Female

DRUGS (8)
  1. ADVAIR DISKUS 100/50 [Suspect]
     Indication: ASTHMA
     Dosage: 1PUFF TWICE PER DAY
     Route: 055
  2. LOPID [Concomitant]
  3. ASTELIN [Concomitant]
  4. ASPIRIN [Concomitant]
  5. CALCIUM + VITAMIN E [Concomitant]
  6. INDERAL [Concomitant]
  7. NASONEX [Concomitant]
  8. ASTEPRO [Concomitant]

REACTIONS (2)
  - FEELING ABNORMAL [None]
  - THROAT IRRITATION [None]
